FAERS Safety Report 4285881-7 (Version None)
Quarter: 2004Q1

REPORT INFORMATION
  Report Type: 
  Country: None (occurrence: None)
  Receive Date: 20040204
  Receipt Date: 20040204
  Transmission Date: 20041129
  Serious: Yes (Hospitalization)
  Sender: FDA-Public Use
  Company Number: None

PATIENT
  Sex: Female
  Weight: 100.6985 kg

DRUGS (7)
  1. XELODA [Suspect]
     Indication: RENAL CELL CARCINOMA STAGE UNSPECIFIED
     Dosage: 830 MG /M2 BID ORAL
     Route: 048
     Dates: start: 20040112, end: 20040112
  2. GEMCITABINE LILY [Suspect]
     Indication: RENAL CELL CARCINOMA STAGE UNSPECIFIED
     Dosage: 600MG/M2 3X/MONTH INTRAVENOUS
     Route: 042
     Dates: start: 20040130, end: 20040130
  3. OXYCONTIN [Concomitant]
  4. OXYCODONE HCL [Concomitant]
  5. DEPO-PROVERA [Concomitant]
  6. SENNA [Concomitant]
  7. COLACE [Concomitant]

REACTIONS (3)
  - EYE PAIN [None]
  - FACIAL PALSY [None]
  - HERPES ZOSTER [None]
